FAERS Safety Report 16377007 (Version 14)
Quarter: 2023Q2

REPORT INFORMATION
  Report Type: Spontaneous
  Country: US (occurrence: US)
  Receive Date: 20190531
  Receipt Date: 20230407
  Transmission Date: 20230722
  Serious: Yes (Hospitalization, Other)
  Sender: FDA-Public Use
  Company Number: US-PFIZER INC-2019232393

PATIENT
  Age: 66 Year
  Sex: Female

DRUGS (9)
  1. XELJANZ XR [Suspect]
     Active Substance: TOFACITINIB CITRATE
     Indication: Rheumatoid arthritis
     Dosage: 11 MG, DAILY
     Dates: start: 20190514
  2. METHOTREXATE [Concomitant]
     Active Substance: METHOTREXATE
     Dosage: 2.5 MG, WEEKLY (SIX TABLETS WEEKLY)
     Dates: start: 2002, end: 20191021
  3. METHOTREXATE [Concomitant]
     Active Substance: METHOTREXATE
     Dosage: 2 DF, WEEKLY (TWO WEEKLY)
     Dates: start: 2002, end: 20191021
  4. METHOTREXATE [Concomitant]
     Active Substance: METHOTREXATE
     Dosage: 4 DF, WEEKLY (TO FOUR WEEKLY)
     Dates: start: 2002, end: 20191021
  5. METHOTREXATE [Concomitant]
     Active Substance: METHOTREXATE
     Dosage: 2 DF, 2X/WEEK (TWO WEEKLY)
     Dates: start: 2002, end: 20191021
  6. FOLIC ACID [Concomitant]
     Active Substance: FOLIC ACID
     Dosage: 1 MG, DAILY
     Dates: start: 2002
  7. IBUPROFEN [Concomitant]
     Active Substance: IBUPROFEN
     Dosage: 300 MG, AS NEEDED (1/2 OF 600 MG)
     Dates: start: 2002
  8. IBANDRONATE SODIUM [Concomitant]
     Active Substance: IBANDRONATE SODIUM
     Dosage: 150 MG, MONTHLY
     Dates: start: 201901
  9. VITAMIN D3 [Concomitant]
     Active Substance: CHOLECALCIFEROL
     Indication: Bone disorder
     Dosage: 2000 IU, DAILY (2000 IU 1 PILL  DAILY)
     Dates: start: 2002

REACTIONS (15)
  - Nerve injury [Unknown]
  - Nephrolithiasis [Unknown]
  - Renal colic [Unknown]
  - Inflammation [Unknown]
  - Upper limb fracture [Unknown]
  - Musculoskeletal stiffness [Recovered/Resolved]
  - Dizziness [Recovered/Resolved]
  - Bronchitis [Recovered/Resolved]
  - Dysphonia [Recovered/Resolved]
  - Blood cholesterol abnormal [Unknown]
  - Illness [Unknown]
  - Injury [Recovering/Resolving]
  - Walking disability [Recovering/Resolving]
  - Pain [Recovering/Resolving]
  - Impaired driving ability [Recovering/Resolving]

NARRATIVE: CASE EVENT DATE: 20220101
